FAERS Safety Report 18952987 (Version 1)
Quarter: 2021Q1

REPORT INFORMATION
  Report Type: Spontaneous
  Country: US (occurrence: US)
  Receive Date: 20210227
  Receipt Date: 20210227
  Transmission Date: 20210420
  Serious: Yes (Hospitalization)
  Sender: FDA-Public Use
  Company Number: None

PATIENT
  Sex: Male

DRUGS (4)
  1. ZYKADIA [Suspect]
     Active Substance: CERITINIB
     Indication: ADRENAL GLAND CANCER
     Route: 048
     Dates: start: 20191123
  2. NEUPOGEN [Concomitant]
     Active Substance: FILGRASTIM
  3. ONDANSETRON [Concomitant]
     Active Substance: ONDANSETRON
  4. NEULASTA [Concomitant]
     Active Substance: PEGFILGRASTIM

REACTIONS (2)
  - Malaise [None]
  - Therapy interrupted [None]
